FAERS Safety Report 8622568-1 (Version None)
Quarter: 2012Q3

REPORT INFORMATION
  Report Type: 
  Country: None (occurrence: None)
  Receive Date: 20120827
  Receipt Date: 20120822
  Transmission Date: 20120928
  Serious: Yes (Hospitalization)
  Sender: FDA-Public Use
  Company Number: JP-009507513-1208JPN009703

PATIENT

DRUGS (10)
  1. REBETOL [Suspect]
     Dosage: 600 MG, UNK
     Route: 048
     Dates: start: 20120615, end: 20120620
  2. TELAVIC [Suspect]
     Dosage: 1500 MG, UNK
     Route: 048
     Dates: start: 20120608
  3. REBETOL [Suspect]
     Dosage: 200 MG, UNK
     Route: 048
     Dates: start: 20120621, end: 20120712
  4. REBETOL [Suspect]
     Indication: HEPATITIS C
     Dosage: 800 MG, UNK
     Route: 048
     Dates: start: 20120606, end: 20120614
  5. REBETOL [Suspect]
     Dosage: 200 MG, QOD
     Route: 048
     Dates: start: 20120713
  6. PEG-INTRON [Suspect]
     Indication: HEPATITIS C
     Dosage: 1.5 MICROGRAM PER KILOGRAM, UNK
     Route: 058
     Dates: start: 20120606
  7. LENDORMIN [Concomitant]
     Dosage: 1 DF, HS(IN ON E DOSE ONLY)
     Route: 048
  8. LANSOPRAZOLE [Concomitant]
     Dosage: 1 DF, QAM (IN ONE DOSE ONLY)
     Route: 048
  9. TELAVIC [Suspect]
     Indication: HEPATITIS C
     Dosage: 2250 MG, QD
     Route: 048
     Dates: start: 20120606, end: 20120607
  10. AMOBAN [Concomitant]
     Dosage: 7.5 MG, HS
     Route: 048

REACTIONS (3)
  - DECREASED APPETITE [None]
  - RENAL IMPAIRMENT [None]
  - MALAISE [None]
